FAERS Safety Report 7711954-X (Version None)
Quarter: 2011Q3

REPORT INFORMATION
  Report Type: 
  Country: None (occurrence: None)
  Receive Date: 20110822
  Receipt Date: 20110809
  Transmission Date: 20111222
  Serious: Yes (Disabling, Other)
  Sender: FDA-Public Use
  Company Number: ACO_26263_2011

PATIENT
  Age: 70 Year
  Sex: Female
  Weight: 62.6 kg

DRUGS (3)
  1. METFORMIN HCL [Concomitant]
  2. AMPYRA [Suspect]
     Indication: GAIT DISTURBANCE
     Dosage: 10 MG, BID, ORAL
     Route: 048
     Dates: start: 20110805, end: 20110806
  3. CYMBALTA [Concomitant]

REACTIONS (12)
  - ABASIA [None]
  - HEMIPLEGIA [None]
  - ANXIETY [None]
  - GAIT DISTURBANCE [None]
  - DIZZINESS [None]
  - INITIAL INSOMNIA [None]
  - CONFUSIONAL STATE [None]
  - BALANCE DISORDER [None]
  - ASTHENIA [None]
  - HYPOAESTHESIA [None]
  - FALL [None]
  - NAUSEA [None]
